FAERS Safety Report 11485134 (Version 4)
Quarter: 2016Q3

REPORT INFORMATION
  Report Type: Spontaneous
  Country: JP (occurrence: JP)
  Receive Date: 20150909
  Receipt Date: 20160818
  Transmission Date: 20161109
  Serious: Yes (Life-Threatening, Hospitalization, Other)
  Sender: FDA-Public Use
  Company Number: JP-GLAXOSMITHKLINE-JP2015JPN100008

PATIENT
  Age: 74 Year
  Sex: Female
  Weight: 51 kg

DRUGS (4)
  1. LAMICTAL [Suspect]
     Active Substance: LAMOTRIGINE
     Indication: SEIZURE
     Dosage: 25 MG, QOD
     Route: 048
     Dates: start: 20120828, end: 20120910
  2. LAMICTAL [Suspect]
     Active Substance: LAMOTRIGINE
     Dosage: 25 MG, QD
     Route: 048
     Dates: start: 20150610, end: 20150704
  3. AMLODIN OD [Concomitant]
     Active Substance: AMLODIPINE BESYLATE
     Dosage: UNK
     Dates: start: 20100511
  4. VALPROATE SODIUM. [Concomitant]
     Active Substance: VALPROATE SODIUM
     Dosage: UNK
     Dates: start: 20141125

REACTIONS (14)
  - Toxic epidermal necrolysis [Recovering/Resolving]
  - Lip erosion [Unknown]
  - Generalised erythema [Recovering/Resolving]
  - Erythema of eyelid [Unknown]
  - Scab [Recovering/Resolving]
  - Blister [Unknown]
  - Skin erosion [Recovering/Resolving]
  - Pyrexia [Unknown]
  - Vulval disorder [Unknown]
  - Visual acuity reduced [Recovered/Resolved]
  - Rash maculo-papular [Unknown]
  - Ocular hyperaemia [Unknown]
  - Eye discharge [Unknown]
  - Oral mucosa erosion [Recovered/Resolved]

NARRATIVE: CASE EVENT DATE: 20150702
